FAERS Safety Report 22207853 (Version 2)
Quarter: 2023Q2

REPORT INFORMATION
  Report Type: Spontaneous
  Country: ZA (occurrence: ZA)
  Receive Date: 20230413
  Receipt Date: 20230509
  Transmission Date: 20230721
  Serious: Yes (Hospitalization)
  Sender: FDA-Public Use
  Company Number: ZA-002147023-NVSC2023ZA083549

PATIENT
  Sex: Female

DRUGS (1)
  1. ACLASTA [Suspect]
     Active Substance: ZOLEDRONIC ACID
     Indication: Osteoporosis
     Dosage: 1 DOSAGE FORM
     Route: 042

REACTIONS (20)
  - Hypocalcaemia [Unknown]
  - Pain [Unknown]
  - Arthralgia [Unknown]
  - Muscle spasms [Unknown]
  - Headache [Unknown]
  - Blood potassium decreased [Unknown]
  - Blood chloride increased [Unknown]
  - Carbon dioxide decreased [Unknown]
  - Blood magnesium decreased [Unknown]
  - Blood phosphorus decreased [Unknown]
  - Feeling abnormal [Unknown]
  - Paraesthesia [Not Recovered/Not Resolved]
  - Pyrexia [Unknown]
  - Nausea [Unknown]
  - Vomiting [Unknown]
  - Insomnia [Unknown]
  - Decreased appetite [Unknown]
  - Rash [Unknown]
  - Dyspnoea [Unknown]
  - Myalgia [Unknown]
